FAERS Safety Report 13198067 (Version 1)
Quarter: 2017Q1

REPORT INFORMATION
  Report Type: Spontaneous
  Country: US (occurrence: US)
  Receive Date: 20170207
  Receipt Date: 20170207
  Transmission Date: 20170428
  Serious: No
  Sender: FDA-Public Use
  Company Number: None

PATIENT
  Age: 31 Year
  Sex: Female

DRUGS (1)
  1. COSENTYX [Suspect]
     Active Substance: SECUKINUMAB
     Indication: PSORIASIS
     Route: 058
     Dates: start: 201701

REACTIONS (5)
  - Fall [None]
  - Loss of consciousness [None]
  - Contusion [None]
  - Dizziness [None]
  - Pain [None]

NARRATIVE: CASE EVENT DATE: 20170202
